FAERS Safety Report 8588594 (Version 3)
Quarter: 2013Q1

REPORT INFORMATION
  Report Type: Spontaneous
  Country: JP (occurrence: JP)
  Receive Date: 20120531
  Receipt Date: 20130125
  Transmission Date: 20140127
  Serious: Yes (Other)
  Sender: FDA-Public Use
  Company Number: JP-GLAXOSMITHKLINE-B0803889A

PATIENT
  Age: 26 Year
  Sex: Female

DRUGS (8)
  1. SERETIDE [Suspect]
     Indication: ASTHMA
     Route: 055
  2. PREDNISOLONE [Concomitant]
     Indication: ASTHMA
     Route: 065
  3. THEOPHYLLINE [Concomitant]
     Indication: ASTHMA
     Route: 065
  4. MONTELUKAST SODIUM [Concomitant]
     Indication: ASTHMA
     Route: 048
  5. PHENYTOIN [Concomitant]
     Indication: EPILEPSY
     Route: 048
  6. PLAVIX [Concomitant]
     Indication: EPILEPSY
     Route: 048
  7. HEPARIN CALCIUM [Concomitant]
     Dosage: 7.5IU3 TWICE PER DAY
     Route: 058
  8. UNKNOWN DRUG [Concomitant]
     Indication: HAEMORRHAGE PROPHYLAXIS
     Route: 048

REACTIONS (11)
  - Exposure during pregnancy [Unknown]
  - Caesarean section [Unknown]
  - Grand mal convulsion [Recovered/Resolved]
  - Pneumonia aspiration [Recovering/Resolving]
  - Sputum retention [Unknown]
  - Atelectasis [Recovering/Resolving]
  - Oxygen saturation decreased [Recovering/Resolving]
  - Anaemia [Recovering/Resolving]
  - Pyrexia [Recovering/Resolving]
  - Placental infarction [Unknown]
  - Placental disorder [Unknown]
